FAERS Safety Report 9305243 (Version 2)
Quarter: 2013Q4

REPORT INFORMATION
  Report Type: Spontaneous
  Country: US (occurrence: US)
  Receive Date: 20130523
  Receipt Date: 20131018
  Transmission Date: 20140711
  Serious: Yes (Hospitalization, Other)
  Sender: FDA-Public Use
  Company Number: US-BAYER-2013-060819

PATIENT
  Age: 30 Year
  Sex: Female
  Weight: 80.73 kg

DRUGS (2)
  1. MIRENA [Suspect]
     Indication: CONTRACEPTION
     Dosage: 20 MCG/24HR, CONT
     Route: 015
     Dates: start: 20060403, end: 20110506
  2. ZOLOFT [Concomitant]
     Indication: DEPRESSION
     Dosage: UNK
     Dates: start: 20060322

REACTIONS (11)
  - Device dislocation [None]
  - Large intestine perforation [None]
  - Uterine perforation [None]
  - Salpingitis [None]
  - Abdominal pain [None]
  - Pain [None]
  - Injury [None]
  - Fallopian tube obstruction [None]
  - Anxiety [None]
  - Menorrhagia [None]
  - Depression [None]
